FAERS Safety Report 15555867 (Version 4)
Quarter: 2019Q1

REPORT INFORMATION
  Report Type: Report from Study
  Country: CA (occurrence: CA)
  Receive Date: 20181026
  Receipt Date: 20190214
  Transmission Date: 20190417
  Serious: Yes (Hospitalization, Other)
  Sender: FDA-Public Use
  Company Number: CA-TAIHO ONCOLOGY  INC-EU-2018-01513

PATIENT
  Age: 55 Year
  Sex: Male
  Weight: 89.7 kg

DRUGS (6)
  1. RABEPRAZOLE [Concomitant]
     Active Substance: RABEPRAZOLE
     Dosage: NI
  2. METOCLOPRAMIDE. [Concomitant]
     Active Substance: METOCLOPRAMIDE
     Dosage: NI
  3. LONSURF [Suspect]
     Active Substance: TIPIRACIL HYDROCHLORIDE\TRIFLURIDINE
     Indication: COLORECTAL CANCER METASTATIC
     Dosage: CYCLE 2 STARTED IN OCT/2018. CYCLE 3 STARTED IN NOV/2018
     Route: 048
     Dates: start: 20180813
  4. LOMOTIL [Concomitant]
     Active Substance: ATROPINE SULFATE\DIPHENOXYLATE HYDROCHLORIDE
     Dosage: NI
  5. VENLAFAXINE [Concomitant]
     Active Substance: VENLAFAXINE HYDROCHLORIDE
     Dosage: NI
  6. MORPHINE [Concomitant]
     Active Substance: MORPHINE
     Dosage: NI

REACTIONS (7)
  - Decreased appetite [Unknown]
  - Haemoglobin abnormal [Recovering/Resolving]
  - Disease progression [None]
  - Muscular weakness [Not Recovered/Not Resolved]
  - Neutropenia [Recovered/Resolved]
  - Thrombocytopenia [Recovered/Resolved]
  - Impaired quality of life [Unknown]

NARRATIVE: CASE EVENT DATE: 20180824
